FAERS Safety Report 19282782 (Version 3)
Quarter: 2021Q2

REPORT INFORMATION
  Report Type: Spontaneous
  Country: JP (occurrence: JP)
  Receive Date: 20210520
  Receipt Date: 20210616
  Transmission Date: 20210717
  Serious: Yes (Other)
  Sender: FDA-Public Use
  Company Number: JP-MALLINCKRODT PHARMACEUTICALS-T202102152

PATIENT
  Age: 67 Year
  Sex: Female

DRUGS (3)
  1. THYRADIN S [Concomitant]
     Active Substance: LEVOTHYROXINE SODIUM
     Indication: PRODUCT USED FOR UNKNOWN INDICATION
     Dosage: UNK
     Route: 048
  2. AMITIZA [Suspect]
     Active Substance: LUBIPROSTONE
     Indication: CONSTIPATION
     Dosage: 12 MICROGRAM, BID
     Route: 048
     Dates: start: 20210510, end: 20210510
  3. SHOKENCHUTO [Concomitant]
     Active Substance: HERBALS
     Indication: PRODUCT USED FOR UNKNOWN INDICATION
     Dosage: 6 DOSAGE FORM, DAILY
     Route: 048
     Dates: start: 20210510, end: 20210510

REACTIONS (3)
  - Ileus [Recovered/Resolved]
  - Faecal volume increased [Recovered/Resolved]
  - Shock [Recovered/Resolved]

NARRATIVE: CASE EVENT DATE: 20210510
